FAERS Safety Report 7476777-8 (Version None)
Quarter: 2011Q2

REPORT INFORMATION
  Report Type: 
  Country: None (occurrence: None)
  Receive Date: 20110512
  Receipt Date: 20110504
  Transmission Date: 20111010
  Serious: Yes (Disabling, Other)
  Sender: FDA-Public Use
  Company Number: US-PFIZER INC-2011096565

PATIENT
  Sex: Female
  Weight: 97.052 kg

DRUGS (3)
  1. TIZANIDINE HCL [Suspect]
     Dosage: UNK
  2. LYRICA [Interacting]
     Indication: FIBROMYALGIA
     Dosage: 150 MG, DAILY
     Route: 048
     Dates: start: 20090101
  3. SOMA [Concomitant]
     Indication: PAIN
     Dosage: UNK, AS NEEDED

REACTIONS (27)
  - DEHYDROEPIANDROSTERONE DECREASED [None]
  - WEIGHT INCREASED [None]
  - DRUG INTERACTION [None]
  - INSOMNIA [None]
  - FEELING ABNORMAL [None]
  - NERVOUSNESS [None]
  - NAUSEA [None]
  - SENSORY DISTURBANCE [None]
  - MUSCLE DISORDER [None]
  - PAIN [None]
  - BLOOD TRIGLYCERIDES ABNORMAL [None]
  - SYNCOPE [None]
  - TOOTH DISORDER [None]
  - GASTROOESOPHAGEAL REFLUX DISEASE [None]
  - ARTHRALGIA [None]
  - MALAISE [None]
  - FEELING DRUNK [None]
  - FIBROMYALGIA [None]
  - ORAL DISORDER [None]
  - EUPHORIC MOOD [None]
  - ANTINUCLEAR ANTIBODY POSITIVE [None]
  - ADRENAL INSUFFICIENCY [None]
  - IRRITABLE BOWEL SYNDROME [None]
  - FEAR [None]
  - ANXIETY [None]
  - CHRONIC FATIGUE SYNDROME [None]
  - MYALGIA [None]
